FAERS Safety Report 7075483-1 (Version None)
Quarter: 2010Q4

REPORT INFORMATION
  Report Type: 
  Country: None (occurrence: None)
  Receive Date: 20101030
  Receipt Date: 20100908
  Transmission Date: 20110411
  Serious: No
  Sender: FDA-Public Use
  Company Number: US-WYE-H17454810

PATIENT
  Sex: Female
  Weight: 73.55 kg

DRUGS (3)
  1. PRISTIQ [Suspect]
     Indication: DEPRESSION
     Dates: start: 20100801
  2. CLONAZEPAM [Suspect]
     Indication: DEPRESSION
     Dosage: UNKNOWN
     Dates: start: 20100801, end: 20100101
  3. CLONAZEPAM [Suspect]
     Dosage: CUT PILL IN HALF
     Dates: start: 20100101

REACTIONS (3)
  - FEELING ABNORMAL [None]
  - HEADACHE [None]
  - SINUSITIS [None]
